FAERS Safety Report 6735840-7 (Version None)
Quarter: 2010Q2

REPORT INFORMATION
  Report Type: 
  Country: None (occurrence: None)
  Receive Date: 20100521
  Receipt Date: 20100513
  Transmission Date: 20101027
  Serious: Yes (Hospitalization)
  Sender: FDA-Public Use
  Company Number: A0833736A

PATIENT
  Sex: Female

DRUGS (2)
  1. AVANDIA [Suspect]
     Indication: DIABETES MELLITUS
     Dosage: 4MG TWICE PER DAY
     Route: 048
     Dates: start: 20060315, end: 20070730
  2. AVANDAMET [Suspect]
     Route: 048
     Dates: start: 20050321, end: 20060315

REACTIONS (2)
  - CARDIOVASCULAR DISORDER [None]
  - INTRACARDIAC THROMBUS [None]
